FAERS Safety Report 8308632-5 (Version None)
Quarter: 2012Q2

REPORT INFORMATION
  Report Type: 
  Country: None (occurrence: None)
  Receive Date: 20120424
  Receipt Date: 20120418
  Transmission Date: 20120825
  Serious: Yes (Death, Other)
  Sender: FDA-Public Use
  Company Number: NZ-PURDUE-USA-2009-0083814

PATIENT
  Age: 19 Year
  Sex: Female

DRUGS (2)
  1. OXYCONTIN [Suspect]
     Indication: PAIN
     Dosage: UNK
     Dates: start: 20070401, end: 20081105
  2. METHADONE HCL [Interacting]
     Indication: INTENTIONAL DRUG MISUSE
     Dosage: UNK
     Route: 048
     Dates: end: 20081105

REACTIONS (6)
  - DRUG INTERACTION [None]
  - MEMORY IMPAIRMENT [None]
  - SOMNOLENCE [None]
  - MULTIPLE DRUG OVERDOSE [None]
  - DEATH [None]
  - DRUG ABUSE [None]
